FAERS Safety Report 5065421-5 (Version None)
Quarter: 2006Q3

REPORT INFORMATION
  Report Type: 
  Country: None (occurrence: None)
  Receive Date: 20060731
  Receipt Date: 20060620
  Transmission Date: 20061208
  Serious: Yes (Life-Threatening, Hospitalization, Other)
  Sender: FDA-Public Use
  Company Number: PHEH2006US08109

PATIENT
  Age: 1 Year
  Sex: Female
  Weight: 14.8 kg

DRUGS (1)
  1. ELIDEL [Suspect]
     Indication: ECZEMA
     Dosage: ONE OR TWO X A DAY
     Route: 061
     Dates: start: 20030609, end: 20040806

REACTIONS (16)
  - ACUTE LYMPHOCYTIC LEUKAEMIA [None]
  - B PRECURSOR TYPE ACUTE LEUKAEMIA [None]
  - DECREASED APPETITE [None]
  - EAR INFECTION [None]
  - HEPATOMEGALY [None]
  - INFECTION IN AN IMMUNOCOMPROMISED HOST [None]
  - IRRITABILITY [None]
  - LYMPHADENOPATHY [None]
  - MICTURITION FREQUENCY DECREASED [None]
  - NEUTROPHIL COUNT DECREASED [None]
  - OEDEMA PERIPHERAL [None]
  - PANCYTOPENIA [None]
  - PLATELET COUNT DECREASED [None]
  - PYREXIA [None]
  - SWELLING FACE [None]
  - WHITE BLOOD CELL COUNT DECREASED [None]
